FAERS Safety Report 14367411 (Version 2)
Quarter: 2018Q1

REPORT INFORMATION
  Report Type: Spontaneous
  Country: US (occurrence: US)
  Receive Date: 20180109
  Receipt Date: 20180327
  Transmission Date: 20180509
  Serious: No
  Sender: FDA-Public Use
  Company Number: US-TARO-2017TAR01056

PATIENT
  Sex: Female
  Weight: 56.69 kg

DRUGS (5)
  1. METRONIDAZOLE GEL USP, 1% [Suspect]
     Active Substance: METRONIDAZOLE
     Indication: ROSACEA
     Dosage: UNK, 1X/DAY TO FACE
     Route: 061
     Dates: start: 2017, end: 2017
  2. METRONIDAZOLE GEL USP, 1% [Suspect]
     Active Substance: METRONIDAZOLE
     Dosage: UNK, 1X/DAY TO FACE
     Route: 061
     Dates: start: 2017
  3. METRONIDAZOLE GEL USP, 1% [Suspect]
     Active Substance: METRONIDAZOLE
     Dosage: ^A THIN LAYER,^ 1X/DAY TO FACE
     Route: 061
     Dates: start: 20180304, end: 20180305
  4. METRONIDAZOLE GEL USP, 1% [Suspect]
     Active Substance: METRONIDAZOLE
     Dosage: UNK, 1X/DAY TO FACE
     Route: 061
  5. 10 UNSPECIFIED SUPPLEMENTS [Concomitant]
     Dosage: UNK, 1X/DAY

REACTIONS (3)
  - Application site pain [Recovered/Resolved]
  - Application site pruritus [Recovered/Resolved]
  - Product quality issue [Recovered/Resolved]

NARRATIVE: CASE EVENT DATE: 2017
